FAERS Safety Report 16156005 (Version 1)
Quarter: 2019Q2

REPORT INFORMATION
  Report Type: Spontaneous
  Country: US (occurrence: US)
  Receive Date: 20190404
  Receipt Date: 20190404
  Transmission Date: 20190711
  Serious: No
  Sender: FDA-Public Use
  Company Number: US-APOTEX-2019AP009318

PATIENT

DRUGS (2)
  1. ATORVASTATIN CALCIUM. [Suspect]
     Active Substance: ATORVASTATIN CALCIUM
     Indication: PRODUCT USED FOR UNKNOWN INDICATION
     Dosage: UNK,  (IN THE EVENING)
     Route: 065
  2. ATORVASTATIN CALCIUM. [Suspect]
     Active Substance: ATORVASTATIN CALCIUM
     Dosage: 0.5 DF, UNK (ONE NIGHT)
     Route: 065

REACTIONS (4)
  - Abdominal discomfort [Unknown]
  - Disturbance in attention [Unknown]
  - Feeling abnormal [Unknown]
  - Fatigue [Unknown]
